FAERS Safety Report 8376285-6 (Version None)
Quarter: 2012Q1

REPORT INFORMATION
  Report Type: 
  Country: None (occurrence: None)
  Receive Date: 20120323
  Receipt Date: 20111212
  Transmission Date: 20120608
  Serious: Yes (Other)
  Sender: FDA-Public Use
  Company Number: 163-21880-11053506

PATIENT
  Age: 79 Year
  Sex: Male
  Weight: 63.5036 kg

DRUGS (12)
  1. CELEXA [Concomitant]
  2. AMBIEN [Concomitant]
  3. DIGOXIN [Concomitant]
  4. REVLIMID [Suspect]
     Indication: MULTIPLE MYELOMA
     Dosage: 25 MG, 21/28 DAYS, PO ; 15 MG, M-W-F-SUN, PO
     Route: 048
     Dates: start: 20110101
  5. REVLIMID [Suspect]
     Indication: MULTIPLE MYELOMA
     Dosage: 25 MG, 21/28 DAYS, PO ; 15 MG, M-W-F-SUN, PO
     Route: 048
     Dates: start: 20110209, end: 20110524
  6. METFORMIN HCL [Concomitant]
  7. DEXAMETHASONE [Concomitant]
  8. LORATADINE [Concomitant]
  9. ACETAMINOPHEN [Concomitant]
  10. SIMVASTATIN [Concomitant]
  11. PRADAXA (DABIGATRAN ETEXILATE MESILATE) [Concomitant]
  12. DILTIAZEM [Concomitant]

REACTIONS (2)
  - LEUKOPENIA [None]
  - AMNESIA [None]
